FAERS Safety Report 19392478 (Version 3)
Quarter: 2021Q3

REPORT INFORMATION
  Report Type: Spontaneous
  Country: JP (occurrence: JP)
  Receive Date: 20210608
  Receipt Date: 20210817
  Transmission Date: 20211014
  Serious: Yes (Death, Other)
  Sender: FDA-Public Use
  Company Number: JP-JNJFOC-20210541448

PATIENT
  Age: 79 Year
  Sex: Female
  Weight: 35.8 kg

DRUGS (11)
  1. PREDNISOLONE. [Concomitant]
     Active Substance: PREDNISOLONE
     Indication: MIXED CONNECTIVE TISSUE DISEASE
     Dosage: DOSE UNKNOWN
     Route: 065
     Dates: start: 2009
  2. OPSUMIT [Suspect]
     Active Substance: MACITENTAN
     Indication: PULMONARY ARTERIAL HYPERTENSION
     Route: 048
     Dates: start: 20181106
  3. TACROLIMUS MONOHYDRATE [Concomitant]
     Active Substance: TACROLIMUS
     Route: 065
     Dates: start: 201805
  4. SILDENAFIL CITRATE. [Concomitant]
     Active Substance: SILDENAFIL CITRATE
     Indication: PULMONARY ARTERIAL HYPERTENSION
     Route: 048
     Dates: start: 201805
  5. PREDNISOLONE. [Concomitant]
     Active Substance: PREDNISOLONE
     Dosage: DOSE UNKNOWN
     Route: 065
     Dates: start: 201805
  6. MYCOPHENOLATE MOFETIL. [Concomitant]
     Active Substance: MYCOPHENOLATE MOFETIL
     Dosage: DOSE UNKNOWN
     Route: 048
     Dates: start: 201212
  7. REVATIO [Concomitant]
     Active Substance: SILDENAFIL CITRATE
     Route: 048
  8. CYCLOPHOSPHAMIDE MONOHYDRATE [Concomitant]
     Active Substance: CYCLOPHOSPHAMIDE
     Route: 065
  9. REVATIO [Concomitant]
     Active Substance: SILDENAFIL CITRATE
     Route: 048
     Dates: start: 201805
  10. VOLIBRIS [Concomitant]
     Active Substance: AMBRISENTAN
     Route: 048
     Dates: start: 201805, end: 20181106
  11. AZATHIOPRINE. [Concomitant]
     Active Substance: AZATHIOPRINE
     Dosage: DOSE UNKNOWN
     Route: 048

REACTIONS (4)
  - Interstitial lung disease [Unknown]
  - Scleroderma [Unknown]
  - Mixed connective tissue disease [Unknown]
  - Sudden death [Fatal]

NARRATIVE: CASE EVENT DATE: 20190304
